FAERS Safety Report 7852162-1 (Version None)
Quarter: 2011Q3

REPORT INFORMATION
  Report Type: 
  Country: None (occurrence: None)
  Receive Date: 20110912
  Receipt Date: 20110613
  Transmission Date: 20111222
  Serious: No
  Sender: FDA-Public Use
  Company Number: TH-2011-00204

PATIENT
  Sex: Female

DRUGS (1)
  1. EGRIFTA [Suspect]
     Indication: LIPODYSTROPHY ACQUIRED
     Dosage: 1 IN 1 D
     Dates: start: 20110314, end: 20110601

REACTIONS (4)
  - OEDEMA PERIPHERAL [None]
  - MENORRHAGIA [None]
  - BODY TEMPERATURE FLUCTUATION [None]
  - UPPER EXTREMITY MASS [None]
